FAERS Safety Report 7927098 (Version 4)
Quarter: 2017Q1

REPORT INFORMATION
  Report Type: Spontaneous
  Country: US (occurrence: US)
  Receive Date: 20110502
  Receipt Date: 20170303
  Transmission Date: 20170429
  Serious: No
  Sender: FDA-Public Use
  Company Number: US-ASTRAZENECA-2010SE53975

PATIENT
  Age: 37 Year
  Sex: Male
  Weight: 108.9 kg

DRUGS (10)
  1. NEXIUM [Suspect]
     Active Substance: ESOMEPRAZOLE MAGNESIUM
     Indication: GASTROOESOPHAGEAL REFLUX DISEASE
     Route: 048
     Dates: start: 2011
  2. FLEXERIL [Concomitant]
     Active Substance: CYCLOBENZAPRINE HYDROCHLORIDE
     Indication: ARTHRITIS
     Dosage: 10.0MG AS REQUIRED
     Route: 048
     Dates: start: 2005
  3. WELLBUTRIN [Concomitant]
     Active Substance: BUPROPION HYDROCHLORIDE
     Indication: DEPRESSION
     Dosage: TWO TIMES A DAY
     Route: 048
     Dates: start: 2005
  4. PROZAC [Concomitant]
     Active Substance: FLUOXETINE HYDROCHLORIDE
     Indication: DEPRESSION
     Dosage: DAILY
     Route: 048
     Dates: start: 2005
  5. NEXIUM [Suspect]
     Active Substance: ESOMEPRAZOLE MAGNESIUM
     Indication: GASTROOESOPHAGEAL REFLUX DISEASE
     Route: 048
     Dates: start: 201010, end: 2011
  6. ZOMIG ZMT [Suspect]
     Active Substance: ZOLMITRIPTAN
     Indication: MIGRAINE
     Dosage: DISSOLVE ONE TABLET BY MOUTH AS NEEDED AS REQUIRED
     Route: 060
     Dates: start: 20140219
  7. ZITHROMAX [Concomitant]
     Active Substance: AZITHROMYCIN DIHYDRATE
  8. XANAX [Concomitant]
     Active Substance: ALPRAZOLAM
     Indication: ANXIETY
     Dosage: 1.0MG AS REQUIRED
     Route: 048
     Dates: start: 2005
  9. XANAX [Concomitant]
     Active Substance: ALPRAZOLAM
     Indication: PANIC ATTACK
     Dosage: 1.0MG AS REQUIRED
     Route: 048
     Dates: start: 2005
  10. ZOMIG ZMT [Suspect]
     Active Substance: ZOLMITRIPTAN
     Indication: MIGRAINE
     Dosage: 5.0MG AS REQUIRED
     Route: 060
     Dates: start: 2005

REACTIONS (11)
  - Abdominal discomfort [Unknown]
  - Cognitive disorder [Not Recovered/Not Resolved]
  - Post concussion syndrome [Unknown]
  - Spinal osteoarthritis [Unknown]
  - Off label use [Unknown]
  - Feeling abnormal [Unknown]
  - Post-traumatic headache [Unknown]
  - Throat irritation [Unknown]
  - Drug dose omission [Unknown]
  - Sinusitis [Unknown]
  - Arthropathy [Unknown]

NARRATIVE: CASE EVENT DATE: 2011
